FAERS Safety Report 7075593-9 (Version None)
Quarter: 2010Q4

REPORT INFORMATION
  Report Type: 
  Country: None (occurrence: None)
  Receive Date: 20101030
  Receipt Date: 20101020
  Transmission Date: 20110411
  Serious: No
  Sender: FDA-Public Use
  Company Number: US-WYE-H18275410

PATIENT
  Sex: Female
  Weight: 113.5 kg

DRUGS (6)
  1. PRISTIQ [Suspect]
     Indication: DEPRESSION
     Dates: start: 20101001
  2. AMBIEN [Concomitant]
  3. MIRAPEX [Concomitant]
  4. BUPROPION HYDROCHLORIDE [Concomitant]
  5. SINGULAIR [Concomitant]
  6. HUMIRA [Concomitant]

REACTIONS (3)
  - DIARRHOEA [None]
  - DRUG INEFFECTIVE [None]
  - MEDICATION RESIDUE [None]
